FAERS Safety Report 4451871-4 (Version None)
Quarter: 2004Q3

REPORT INFORMATION
  Report Type: 
  Country: None (occurrence: None)
  Receive Date: 20040915
  Receipt Date: 20040915
  Transmission Date: 20050211
  Serious: Yes (Life-Threatening, Hospitalization)
  Sender: FDA-Public Use
  Company Number: None

PATIENT
  Age: 47 Year
  Sex: Female
  Weight: 109.3 kg

DRUGS (21)
  1. TAMOXIFEN CITRATE [Suspect]
     Dosage: 10 MG BID
     Dates: start: 20021101, end: 20040401
  2. FLUOXETINE HCL [Concomitant]
  3. LORAZEPAM [Concomitant]
  4. ALBUTEROL SULFATE AND IPRATROPIUM BROMIDE [Concomitant]
  5. FOLIC ACID [Concomitant]
  6. LEVOTHYROXINE (SYNTHROID) [Concomitant]
  7. BACLOFEN [Concomitant]
  8. RISPERIDONE [Concomitant]
  9. CYPROHEPTADINE HCL [Concomitant]
  10. DOCUSATE [Concomitant]
  11. OMEPRAZOLE [Concomitant]
  12. PE SULFATE/ FA/ VIT B+ C SA TAB [Concomitant]
  13. BUPROPION HCL [Concomitant]
  14. CELECOXIB [Concomitant]
  15. FUROSEMIDE [Concomitant]
  16. POTASSUM CHLORIDE [Concomitant]
  17. PREDNISONE [Concomitant]
  18. OXYCODONE AND ACETAMINOPHEN [Concomitant]
  19. METHADONE HCL [Concomitant]
  20. CLONIDINE TRANSDERM [Concomitant]
  21. CALCIUM CARBONATE [Concomitant]

REACTIONS (1)
  - PULMONARY EMBOLISM [None]
